FAERS Safety Report 4715742-8 (Version None)
Quarter: 2005Q2

REPORT INFORMATION
  Report Type: 
  Country: None (occurrence: None)
  Receive Date: 20050629
  Receipt Date: 20050511
  Transmission Date: 20051028
  Serious: No
  Sender: FDA-Public Use
  Company Number: SP00440

PATIENT
  Age: 79 Year
  Sex: Female

DRUGS (11)
  1. XIFAXAN [Suspect]
     Indication: DIARRHOEA
     Dosage: 200MG/TID, ORAL
     Route: 048
     Dates: start: 20050511
  2. XIFAXAN [Suspect]
     Indication: GASTROINTESTINAL DISORDER
     Dosage: 200MG/TID, ORAL
     Route: 048
     Dates: start: 20050511
  3. PREDNISONE [Concomitant]
  4. IMURAN(UNKNOWN) [Concomitant]
  5. LASIX [Concomitant]
  6. POTASSIUM TABLETS(UNKNOWN) [Concomitant]
  7. ASPIRIN(UNKNOWN) [Concomitant]
  8. CITRACAL(TABLETS) [Concomitant]
  9. LOPRESSOR(UNKNOWN) [Concomitant]
  10. PLAVIX(UNKNOWN) [Concomitant]
  11. CENTRUM SILVER MULTIVITIAMINS(UNKNOWN) [Concomitant]

REACTIONS (4)
  - ASTHENIA [None]
  - FEELING ABNORMAL [None]
  - LISTLESS [None]
  - SLUGGISHNESS [None]
